FAERS Safety Report 10234790 (Version 1)
Quarter: 2014Q1

REPORT INFORMATION
  Report Type: Spontaneous
  Country: US (occurrence: None)
  Receive Date: 20140306
  Receipt Date: 20140306
  Transmission Date: 20141002
  Serious: Yes (Disabling, Other)
  Sender: FDA-Public Use
  Company Number: 163-21880-13043586

PATIENT
  Age: 70 Year
  Sex: Female
  Weight: 62.6 kg

DRUGS (26)
  1. REVLIMID (LENALIDOMIDE) (15 MILLIGRAM, CAPSULES) [Suspect]
     Indication: PLASMA CELL MYELOMA
     Route: 048
     Dates: start: 201206
  2. PREDNISONE (PREDNISONE) [Concomitant]
  3. ACYCLOVIR (ACICLOVIR) [Concomitant]
  4. ALEVE (NAPROXEN SODIUM) (CAPSULES) [Concomitant]
  5. ASPIRINE (ACETYLSALICYLIC ACID) (TABLETS) [Concomitant]
  6. ATARAX (HYDROXYZINE HYDROCHLORIDE) (TABLETS) [Concomitant]
  7. ATIVAN (LORAZEPAM) (TABLETS) [Concomitant]
  8. CO Q 10 (UBIDECARENONE) (CAPSULES) [Concomitant]
  9. DAILY VITAMINS (DAILY VITAMINS) (TABLETS) [Concomitant]
  10. DITROPAN XL (OXYBUTYNIN HYDROCHLORIDE) (TABLETS) [Concomitant]
  11. GLUCOSAMINE CHONDROITIN (GLUCOSAMINE W/CHONDROITIN SULFATE) (CAPSULES) [Concomitant]
  12. MECLIZINE HCL (MECLOZINE HYDROCHLORIDE) (TABLETS) [Concomitant]
  13. MIRALAX (MACROGOL) [Concomitant]
  14. NITROFURANTOIN MACROCRYSTAL (NITROFURANTOIN) (CAPSULES) [Concomitant]
  15. OMEGA 3 (FISH OIL) (CAPSULES) [Concomitant]
  16. PRILOSEC (OMEPRAZOLE) [Concomitant]
  17. PROZAC (FLUOXETINE HYDROCHLORIDE) [Concomitant]
  18. RA CALCIUM HIGH POTENCY (CALCIUM) [Concomitant]
  19. SUDAFED (PSEUDOEPHEDRINE HYDROCHLORIDE) [Concomitant]
  20. VITAMIN B COMPLEX (B-KOMPLEX ^LECIVA^) [Concomitant]
  21. VITAMIN C (ASCORBIC ACID) [Concomitant]
  22. VITAMIN E (TOCOPHEROL) [Concomitant]
  23. ZINC (ZINC) [Concomitant]
  24. BORTEZOMIB (BORTEZOMIB) [Concomitant]
  25. PHENERGAN (PROMETHAZINE) [Concomitant]
  26. DEXAMETHASONE (DEXAMETHASONE) [Concomitant]

REACTIONS (2)
  - Neuropathy peripheral [None]
  - Pancytopenia [None]
